FAERS Safety Report 8449816-5 (Version None)
Quarter: 2012Q2

REPORT INFORMATION
  Report Type: 
  Country: None (occurrence: None)
  Receive Date: 20120620
  Receipt Date: 20120612
  Transmission Date: 20120825
  Serious: Yes (Hospitalization)
  Sender: FDA-Public Use
  Company Number: US-ELI_LILLY_AND_COMPANY-US201205004671

PATIENT
  Sex: Female
  Weight: 80.272 kg

DRUGS (8)
  1. LASIX [Concomitant]
  2. NOVOLOG [Concomitant]
  3. ULORIC [Concomitant]
  4. LEVOXYL [Concomitant]
  5. ZYPREXA [Suspect]
     Dosage: 10 MG, BID
     Route: 065
     Dates: start: 20120420
  6. ZYPREXA [Suspect]
     Indication: MANIA
     Dosage: UNK, UNKNOWN
     Route: 065
     Dates: start: 20080101
  7. ZYPREXA [Suspect]
     Dosage: 10 MG, TID
     Route: 048
  8. VASOTEC [Concomitant]

REACTIONS (9)
  - BIPOLAR I DISORDER [None]
  - BLOOD CREATININE INCREASED [None]
  - BLOOD CHOLESTEROL INCREASED [None]
  - MANIA [None]
  - ABNORMAL BEHAVIOUR [None]
  - OVERDOSE [None]
  - RENAL IMPAIRMENT [None]
  - CARDIAC FAILURE CONGESTIVE [None]
  - TACHYCARDIA [None]
